FAERS Safety Report 4808571-8 (Version None)
Quarter: 2005Q4

REPORT INFORMATION
  Report Type: 
  Country: None (occurrence: None)
  Receive Date: 20051025
  Receipt Date: 20051021
  Transmission Date: 20060501
  Serious: Yes (Other)
  Sender: FDA-Public Use
  Company Number: US-GLAXOSMITHKLINE-A0579164A

PATIENT
  Age: 53 Year
  Sex: Male

DRUGS (2)
  1. WELLBUTRIN [Suspect]
     Indication: DEPRESSION
     Dosage: 150MG PER DAY
     Route: 048
     Dates: start: 20051012, end: 20051014
  2. NO CONCURRENT MEDICATION [Concomitant]

REACTIONS (2)
  - HEART RATE INCREASED [None]
  - SUICIDAL IDEATION [None]
